FAERS Safety Report 15604080 (Version 3)
Quarter: 2018Q4

REPORT INFORMATION
  Report Type: Spontaneous
  Country: US (occurrence: US)
  Receive Date: 20181109
  Receipt Date: 20181210
  Transmission Date: 20190205
  Serious: Yes (Hospitalization, Other)
  Sender: FDA-Public Use
  Company Number: US-009507513-1810USA013964

PATIENT
  Age: 77 Year
  Sex: Male
  Weight: 86.17 kg

DRUGS (8)
  1. LEXAPRO [Concomitant]
     Active Substance: ESCITALOPRAM OXALATE
     Indication: DEPRESSION
     Dosage: 10 MILLIGRAM, QD
     Route: 048
  2. TEMODAR [Suspect]
     Active Substance: TEMOZOLOMIDE
     Indication: GLIOBLASTOMA
     Dosage: 160 MILLIGRAM, DAILY
     Route: 048
     Dates: start: 20180912, end: 20181022
  3. DEXAMETHASONE. [Concomitant]
     Active Substance: DEXAMETHASONE
     Indication: GLIOBLASTOMA
     Dosage: 4 MILLIGRAM, QD
     Route: 048
     Dates: start: 20180821
  4. LOSARTAN. [Concomitant]
     Active Substance: LOSARTAN
     Dosage: UNK
  5. KEPPRA [Concomitant]
     Active Substance: LEVETIRACETAM
     Indication: GLIOBLASTOMA
     Dosage: TOTAL DAILY DOSE: 1000 MG
     Route: 048
     Dates: start: 20180811
  6. VITAMINS (UNSPECIFIED) [Concomitant]
     Active Substance: VITAMINS
     Dosage: UNK
  7. VITAMIN E [Concomitant]
     Active Substance: .ALPHA.-TOCOPHEROL
     Dosage: UNK
     Route: 048
  8. ATORVASTATIN [Concomitant]
     Active Substance: ATORVASTATIN
     Indication: HYPERLIPIDAEMIA
     Dosage: UNK
     Route: 048
     Dates: end: 20180829

REACTIONS (3)
  - Epistaxis [Recovered/Resolved]
  - Pancytopenia [Not Recovered/Not Resolved]
  - Febrile neutropenia [Unknown]

NARRATIVE: CASE EVENT DATE: 201810
